FAERS Safety Report 9310453 (Version 2)
Quarter: 2013Q3

REPORT INFORMATION
  Report Type: Report from Study
  Country: AR (occurrence: AR)
  Receive Date: 20130527
  Receipt Date: 20130701
  Transmission Date: 20140515
  Serious: Yes (Hospitalization)
  Sender: FDA-Public Use
  Company Number: PHHY2013AR052877

PATIENT
  Age: 72 Year
  Sex: Male

DRUGS (2)
  1. DIOVAN [Suspect]
     Indication: HYPERTENSION
     Dosage: 80 MG, DAILY
     Route: 048
  2. NICOTINEL-TTS [Concomitant]
     Indication: SMOKING CESSATION THERAPY
     Dosage: 1 DF, DAILY
     Route: 062
     Dates: start: 20130520

REACTIONS (2)
  - Respiratory disorder [Not Recovered/Not Resolved]
  - Erysipelas [Recovering/Resolving]
